FAERS Safety Report 9624182 (Version 2)
Quarter: 2013Q4

REPORT INFORMATION
  Report Type: Report from Study
  Country: US (occurrence: US)
  Receive Date: 20131015
  Receipt Date: 20131231
  Transmission Date: 20140711
  Serious: Yes (Death, Hospitalization)
  Sender: FDA-Public Use
  Company Number: US-ALEXION PHARMACEUTICALS INC.-A201302594

PATIENT
  Age: 19 Year
  Sex: Male

DRUGS (2)
  1. SOLIRIS [Suspect]
     Indication: PROPHYLAXIS AGAINST TRANSPLANT REJECTION
     Dosage: 900 MG, UNK
     Route: 042
  2. SOLIRIS [Suspect]
     Indication: OFF LABEL USE

REACTIONS (4)
  - Transplant rejection [Fatal]
  - Respiratory failure [Fatal]
  - Pneumonia [Unknown]
  - Off label use [Unknown]
